FAERS Safety Report 10018409 (Version 1)
Quarter: 2014Q1

REPORT INFORMATION
  Report Type: Spontaneous
  Country: IT (occurrence: None)
  Receive Date: 20140312
  Receipt Date: 20140312
  Transmission Date: 20141002
  Serious: Yes (Hospitalization, Other)
  Sender: FDA-Public Use
  Company Number: FK201400789

PATIENT
  Age: 54 Year
  Sex: Female

DRUGS (2)
  1. OXALIPLATIN (MANUFACTURER UNKNOWN) (OXALIPLATIN) (OXALIPLATIN) [Suspect]
     Indication: COLON CANCER STAGE III
     Dosage: NOT OTHERWISE SPECIFIED
     Route: 042
  2. CAPECITABINE (MANUFACTURER UNKNOWN) (CAPECITABINE) (CAPECITABINE) [Suspect]
     Indication: COLON CANCER STAGE III
     Dosage: NOT OTHERWISE SPECIFIED
     Route: 042

REACTIONS (8)
  - Eyelid ptosis [None]
  - Anxiety [None]
  - Wheezing [None]
  - Dyspnoea [None]
  - Constipation [None]
  - Paraesthesia [None]
  - Diarrhoea [None]
  - Eyelid ptosis [None]
